FAERS Safety Report 13978273 (Version 1)
Quarter: 2017Q3

REPORT INFORMATION
  Report Type: Spontaneous
  Country: AT (occurrence: AT)
  Receive Date: 20170915
  Receipt Date: 20170915
  Transmission Date: 20171128
  Serious: Yes (Other)
  Sender: FDA-Public Use
  Company Number: PHHY2017AT134476

PATIENT
  Age: 32 Year
  Sex: Female

DRUGS (2)
  1. CLAVAMOX [Suspect]
     Active Substance: AMOXICILLIN\CLAVULANATE POTASSIUM
     Indication: OROPHARYNGEAL PAIN
     Dosage: 1 DF, UNK
     Route: 065
  2. CLAVAMOX [Suspect]
     Active Substance: AMOXICILLIN\CLAVULANATE POTASSIUM
     Indication: TONSILLITIS

REACTIONS (4)
  - Swelling face [Unknown]
  - Dizziness [Unknown]
  - Peripheral swelling [Unknown]
  - Circulatory collapse [Unknown]
